FAERS Safety Report 6235631-X (Version None)
Quarter: 2009Q2

REPORT INFORMATION
  Report Type: 
  Country: None (occurrence: None)
  Receive Date: 20090616
  Receipt Date: 20090603
  Transmission Date: 20091009
  Serious: Yes (Hospitalization)
  Sender: FDA-Public Use
  Company Number: DSM-2009-00761

PATIENT
  Age: 85 Year
  Sex: Female

DRUGS (6)
  1. ALTEIS (OLMESARTAN MEDOXOMIL) (TABLET) (OLMESARTAN MEDOXOMIL) [Suspect]
     Indication: HYPERTENSION
     Dosage: 20 MG (20 MG, 1 IN 1 D), ORAL
     Route: 048
     Dates: start: 20080106, end: 20080106
  2. IPERTEN (MANIDIPINE HYDROCHLORIDE) (MANIDIPINE HYDROCHLORIDE) [Suspect]
     Indication: HYPERTENSION
     Dosage: 10 MG, ORAL
     Route: 048
  3. HYPERIUM (RILMENIDINE) (RILMENIDINE) [Suspect]
     Indication: HYPERTENSION
     Dosage: 1 MG, ORAL
     Route: 048
  4. KARDEGIC (ACETYLSALICYLATE LYSINE) (ACETYLSALICYLATE LYSINE) [Concomitant]
  5. VASTERAL (TRIMETAZIDINE HYDROCHLORIDE) (TRIMETAZIDINE HYDROCHLORIDE) [Concomitant]
  6. LEXOMIL (BROMAZEPAM) (BROMAZEPAM) [Concomitant]

REACTIONS (5)
  - BLOOD PRESSURE INCREASED [None]
  - DRUG INTERACTION [None]
  - FALL [None]
  - RHABDOMYOLYSIS [None]
  - SYNCOPE [None]
